FAERS Safety Report 14928710 (Version 2)
Quarter: 2020Q2

REPORT INFORMATION
  Report Type: Spontaneous
  Country: GB (occurrence: GB)
  Receive Date: 20180523
  Receipt Date: 20200428
  Transmission Date: 20200713
  Serious: Yes (Hospitalization)
  Sender: FDA-Public Use
  Company Number: PHHY2018GB004313

PATIENT
  Age: 55 Year
  Sex: Male

DRUGS (2)
  1. COCODAMOL [Suspect]
     Active Substance: ACETAMINOPHEN\CODEINE PHOSPHATE
     Indication: PRODUCT USED FOR UNKNOWN INDICATION
     Dosage: UNK
     Route: 065
     Dates: start: 201805
  2. CLOZARIL [Suspect]
     Active Substance: CLOZAPINE
     Indication: SCHIZOPHRENIA
     Dosage: UNK
     Route: 048
     Dates: start: 20071109, end: 20180515

REACTIONS (5)
  - Syncope [Unknown]
  - Wrong technique in product usage process [Unknown]
  - Constipation [Not Recovered/Not Resolved]
  - Liver function test abnormal [Unknown]
  - Overdose [Unknown]

NARRATIVE: CASE EVENT DATE: 201805
